FAERS Safety Report 6503559-3 (Version None)
Quarter: 2009Q4

REPORT INFORMATION
  Report Type: 
  Country: None (occurrence: None)
  Receive Date: 20091217
  Receipt Date: 20091216
  Transmission Date: 20100525
  Serious: Yes (Death, Hospitalization, Other)
  Sender: FDA-Public Use
  Company Number: FR-BAYER-200936811GPV

PATIENT
  Age: 76 Year
  Sex: Male
  Weight: 100 kg

DRUGS (10)
  1. NEXAVAR [Suspect]
     Indication: HEPATIC NEOPLASM MALIGNANT
     Dates: start: 20090201
  2. NEXAVAR [Suspect]
     Dates: start: 20090701, end: 20091015
  3. KARDEGIC [Concomitant]
     Dosage: 160
  4. TENORMIN [Concomitant]
  5. LANSOPRAZOLE [Concomitant]
     Dosage: 15
     Route: 048
  6. NICORANDIL [Concomitant]
     Dosage: 20
     Route: 048
  7. NITRODERM [Concomitant]
     Dosage: 10
  8. LAROXYL [Concomitant]
     Dosage: 50
     Route: 048
  9. HEMIGOXINE [Concomitant]
     Route: 048
  10. DIANTALVIC [Concomitant]
     Route: 048

REACTIONS (9)
  - ASCITES [None]
  - CEREBRAL HAEMORRHAGE [None]
  - CEREBROVASCULAR ACCIDENT [None]
  - FATIGUE [None]
  - GENERAL PHYSICAL HEALTH DETERIORATION [None]
  - HEMIPLEGIA [None]
  - JAUNDICE [None]
  - MUSCULAR WEAKNESS [None]
  - PALMAR-PLANTAR ERYTHRODYSAESTHESIA SYNDROME [None]
